FAERS Safety Report 14179523 (Version 1)
Quarter: 2017Q4

REPORT INFORMATION
  Report Type: Spontaneous
  Country: US (occurrence: US)
  Receive Date: 20171110
  Receipt Date: 20171110
  Transmission Date: 20180321
  Serious: Yes (Life-Threatening, Hospitalization)
  Sender: FDA-Public Use
  Company Number: US-PFIZER INC-2017481628

PATIENT
  Age: 61 Year
  Sex: Female
  Weight: 58.97 kg

DRUGS (1)
  1. CELEBREX [Suspect]
     Active Substance: CELECOXIB
     Indication: ARTHRITIS
     Dosage: 60 MG, 2X/DAY
     Dates: end: 201109

REACTIONS (8)
  - Cerebrovascular accident [Recovered/Resolved with Sequelae]
  - Tooth loss [Unknown]
  - Bruxism [Unknown]
  - Loss of consciousness [Unknown]
  - Incontinence [Unknown]
  - Weight decreased [Unknown]
  - Myocardial infarction [Recovered/Resolved]
  - Aggression [Unknown]

NARRATIVE: CASE EVENT DATE: 201109
